FAERS Safety Report 25025617 (Version 1)
Quarter: 2025Q1

REPORT INFORMATION
  Report Type: Other
  Country: BG (occurrence: BG)
  Receive Date: 20250228
  Receipt Date: 20250228
  Transmission Date: 20250408
  Serious: Yes (Other)
  Sender: VITRUVIAS THERAPEUTICS
  Company Number: BG-Vitruvias Therapeutics-2172015

PATIENT
  Age: 87 Year
  Sex: Female

DRUGS (3)
  1. PROPAFENONE HYDROCHLORIDE [Suspect]
     Active Substance: PROPAFENONE HYDROCHLORIDE
  2. LISINOPRIL AND HYDROCHLOROTHIAZIDE [Suspect]
     Active Substance: HYDROCHLOROTHIAZIDE\LISINOPRIL
  3. BISOPROLOL FUMARATE [Suspect]
     Active Substance: BISOPROLOL FUMARATE

REACTIONS (4)
  - Squamous cell carcinoma [Recovering/Resolving]
  - Basal cell carcinoma [Recovering/Resolving]
  - Basal cell carcinoma [Recovering/Resolving]
  - Keratoacanthoma [Recovering/Resolving]
